FAERS Safety Report 7315855-0 (Version None)
Quarter: 2011Q1

REPORT INFORMATION
  Report Type: 
  Country: None (occurrence: None)
  Receive Date: 20110219
  Receipt Date: 20100610
  Transmission Date: 20110831
  Serious: Yes (Hospitalization)
  Sender: FDA-Public Use
  Company Number: A-NJ2010-35984

PATIENT
  Age: 53 Year
  Sex: Female

DRUGS (2)
  1. TRACLEER [Suspect]
     Indication: PULMONARY ARTERIAL HYPERTENSION
     Dosage: ORAL
     Route: 048
     Dates: start: 20080321, end: 20100519
  2. REVATIO [Concomitant]

REACTIONS (3)
  - HYPOTENSION [None]
  - OEDEMA [None]
  - HEART AND LUNG TRANSPLANT [None]
